FAERS Safety Report 8958261 (Version 1)
Quarter: 2012Q4

REPORT INFORMATION
  Report Type: 
  Country: SE (occurrence: SE)
  Receive Date: 20121211
  Receipt Date: 20121211
  Transmission Date: 20130627
  Serious: Yes (Life-Threatening)
  Sender: FDA-Public Use
  Company Number: SE-B.I. PHARMACEUTICALS,INC./RIDGEFIELD-2012-SW-00906SW

PATIENT
  Age: 77 Year
  Sex: Male

DRUGS (4)
  1. PRADAXA [Suspect]
     Indication: ATRIAL FIBRILLATION
     Dosage: 300 mg
     Route: 048
     Dates: start: 20120515, end: 20120621
  2. GLIVEC [Concomitant]
  3. METOTREXAT [Concomitant]
  4. PREDNISOLON [Concomitant]

REACTIONS (2)
  - Subdural haemorrhage [Recovered/Resolved]
  - Headache [Recovered/Resolved]
